FAERS Safety Report 21184703 (Version 1)
Quarter: 2022Q3

REPORT INFORMATION
  Report Type: Spontaneous
  Country: IT (occurrence: IT)
  Receive Date: 20220808
  Receipt Date: 20220808
  Transmission Date: 20221027
  Serious: Yes (Life-Threatening, Hospitalization, Other)
  Sender: FDA-Public Use
  Company Number: IT-MACLEODS PHARMA UK LTD-MAC2022036454

PATIENT
  Sex: Female
  Weight: .66 kg

DRUGS (1)
  1. ESCITALOPRAM [Suspect]
     Active Substance: ESCITALOPRAM OXALATE
     Indication: Product used for unknown indication
     Dosage: UNK, MATERNAL DOSE: 10 MILLIGRAM, QD (FROM CONCEPTION TO THE WEEK BEFORE DELIVERY)
     Route: 064

REACTIONS (15)
  - Ductus venosus agenesis [Recovered/Resolved]
  - Patent ductus arteriosus [Unknown]
  - Foetal growth restriction [Recovered/Resolved]
  - Anuria [Recovered/Resolved]
  - Neonatal respiratory distress syndrome [Recovered/Resolved]
  - Haemodynamic instability [Recovered/Resolved]
  - Oliguria [Recovered/Resolved]
  - Right ventricular dilatation [Recovered/Resolved]
  - Generalised oedema [Recovered/Resolved]
  - Metabolic acidosis [Recovered/Resolved]
  - Neonatal hypoxia [Recovered/Resolved]
  - Newborn persistent pulmonary hypertension [Recovered/Resolved]
  - Foetal exposure during pregnancy [Unknown]
  - Hypotension [Recovered/Resolved]
  - Tachycardia [Recovered/Resolved]
